FAERS Safety Report 5851871-3 (Version None)
Quarter: 2008Q3

REPORT INFORMATION
  Report Type: 
  Country: None (occurrence: None)
  Receive Date: 20080819
  Receipt Date: 20080808
  Transmission Date: 20090109
  Serious: Yes (Death, Disabling, Other)
  Sender: FDA-Public Use
  Company Number: 2008-01004

PATIENT
  Age: 56 Year
  Sex: Male
  Weight: 62 kg

DRUGS (18)
  1. VELCADE [Suspect]
     Indication: MULTIPLE MYELOMA
     Dosage: 1.90 MG, INTRAVENOUS
     Route: 042
     Dates: start: 20070529, end: 20070608
  2. SENNOSIDE A (SENNOSIDE A) [Concomitant]
  3. ACYCLOVIR [Concomitant]
  4. ITRACONAZOLE [Concomitant]
  5. SULFAMETHOXAZOLE AND TRIMETHOPRIM [Concomitant]
  6. PANTOSIN (PANTETHINE) [Concomitant]
  7. MAGNESIUM OXIDE (MAGNESIUM OXIDE) [Concomitant]
  8. FENTANYL-100 [Concomitant]
  9. LAMIVUDINE [Concomitant]
  10. ENTECAVIR HYDRATE [Concomitant]
  11. ZOLPIDEM TARTRATE [Concomitant]
  12. BIOFERMIN R (STREPTOCOCCUS FAECALIS) [Concomitant]
  13. LANSOPRAZOLE [Concomitant]
  14. MAXIPIME [Concomitant]
  15. NOVAMIN (PROCHLORPERAZINE) [Concomitant]
  16. NEO-MINOPHAGEN C (GLYCYRRHIZIC ACID, AMMONIUM SALT) [Concomitant]
  17. RED BLOOD CELLS [Concomitant]
  18. PLATELETS [Concomitant]

REACTIONS (17)
  - ABDOMINAL DISTENSION [None]
  - ALANINE AMINOTRANSFERASE INCREASED [None]
  - ASPARTATE AMINOTRANSFERASE INCREASED [None]
  - BLOOD LACTATE DEHYDROGENASE INCREASED [None]
  - DIARRHOEA [None]
  - DISEASE PROGRESSION [None]
  - DYSSTASIA [None]
  - GAIT DISTURBANCE [None]
  - HYPOAESTHESIA [None]
  - MULTIPLE MYELOMA [None]
  - MUSCULAR WEAKNESS [None]
  - NAUSEA [None]
  - NEUTROPHIL COUNT DECREASED [None]
  - PLATELET COUNT DECREASED [None]
  - PYREXIA [None]
  - TUMOUR LYSIS SYNDROME [None]
  - WHITE BLOOD CELL COUNT DECREASED [None]
